FAERS Safety Report 8389946 (Version 2)
Quarter: 2013Q1

REPORT INFORMATION
  Report Type: Spontaneous
  Country: NO (occurrence: NO)
  Receive Date: 20120203
  Receipt Date: 20130204
  Transmission Date: 20140127
  Serious: Yes (Other)
  Sender: FDA-Public Use
  Company Number: PHHY2012NO008653

PATIENT
  Sex: Male
  Weight: 80 kg

DRUGS (1)
  1. LEPONEX [Suspect]
     Indication: PSYCHOTIC DISORDER
     Dosage: 100 MG MORNING + 500 MG EVENING
     Dates: start: 20100801

REACTIONS (3)
  - Pollakiuria [Unknown]
  - Thinking abnormal [Unknown]
  - Fatigue [Unknown]
